FAERS Safety Report 10084292 (Version 2)
Quarter: 2014Q2

REPORT INFORMATION
  Report Type: Spontaneous
  Country: IT (occurrence: IT)
  Receive Date: 20140417
  Receipt Date: 20140508
  Transmission Date: 20141212
  Serious: Yes (Other)
  Sender: FDA-Public Use
  Company Number: IT-SA-2014SA042642

PATIENT
  Age: 69 Year
  Sex: Female
  Weight: 64 kg

DRUGS (9)
  1. CLOPIDOGREL BISULFATE [Suspect]
     Indication: PRODUCT USED FOR UNKNOWN INDICATION
     Route: 048
     Dates: start: 201209, end: 20120928
  2. RAMIPRIL [Concomitant]
  3. CORLENTOR [Concomitant]
     Route: 048
  4. CONCOR [Concomitant]
  5. ALFACALCIDOL [Concomitant]
  6. TRINIPLAS [Concomitant]
  7. INEGY [Concomitant]
  8. NOVONORM [Concomitant]
  9. RANITIDINE [Concomitant]

REACTIONS (7)
  - Quadriplegia [Recovered/Resolved]
  - Headache [Recovered/Resolved]
  - Hypersensitivity [Recovered/Resolved]
  - Areflexia [Recovered/Resolved]
  - Muscle tightness [Recovered/Resolved]
  - Limb discomfort [Recovered/Resolved]
  - Gait disturbance [Recovered/Resolved]
